FAERS Safety Report 8013259-9 (Version None)
Quarter: 2011Q4

REPORT INFORMATION
  Report Type: 
  Country: None (occurrence: None)
  Receive Date: 20111229
  Receipt Date: 20111229
  Transmission Date: 20120403
  Serious: No
  Sender: FDA-Public Use
  Company Number: None

PATIENT
  Age: 69 Year
  Sex: Male
  Weight: 81.646 kg

DRUGS (2)
  1. MOXEZA [Suspect]
     Indication: EYE DISCHARGE
     Dosage: 1 DROP
     Route: 047
     Dates: start: 20111226, end: 20111227
  2. MOXEZA [Suspect]
     Indication: EYE INFLAMMATION
     Dosage: 1 DROP
     Route: 047
     Dates: start: 20111226, end: 20111227

REACTIONS (2)
  - EYE PAIN [None]
  - PRODUCT QUALITY ISSUE [None]
